FAERS Safety Report 19390993 (Version 2)
Quarter: 2021Q2

REPORT INFORMATION
  Report Type: Spontaneous
  Country: US (occurrence: US)
  Receive Date: 20210609
  Receipt Date: 20210617
  Transmission Date: 20210717
  Serious: Yes (Life-Threatening, Hospitalization, Other)
  Sender: FDA-Public Use
  Company Number: US-ETHYPHARM-2021000866

PATIENT
  Age: 55 Year
  Sex: Male

DRUGS (4)
  1. BUPRENORPHINE. [Suspect]
     Active Substance: BUPRENORPHINE
  2. BUPRENORPHINE. [Suspect]
     Active Substance: BUPRENORPHINE
  3. METHADONE [Concomitant]
     Active Substance: METHADONE HYDROCHLORIDE
  4. OXYMORPHONE [Concomitant]
     Active Substance: OXYMORPHONE

REACTIONS (8)
  - Hyperhidrosis [Recovering/Resolving]
  - Dyspnoea [Recovering/Resolving]
  - Drug withdrawal syndrome [Recovering/Resolving]
  - Muscle spasms [Recovering/Resolving]
  - Pain [Recovering/Resolving]
  - Tremor [Recovering/Resolving]
  - Myoclonus [Recovering/Resolving]
  - Confusional state [Recovering/Resolving]
